FAERS Safety Report 25621491 (Version 1)
Quarter: 2025Q3

REPORT INFORMATION
  Report Type: Spontaneous
  Country: US (occurrence: US)
  Receive Date: 20250730
  Receipt Date: 20250730
  Transmission Date: 20251020
  Serious: Yes (Other)
  Sender: RANBAXY
  Company Number: US-SUN PHARMACEUTICAL INDUSTRIES INC-2025R1-518107

PATIENT

DRUGS (2)
  1. IVERMECTIN [Interacting]
     Active Substance: IVERMECTIN
     Indication: Product used for unknown indication
     Route: 065
  2. REGORAFENIB [Interacting]
     Active Substance: REGORAFENIB
     Indication: Product used for unknown indication
     Route: 065

REACTIONS (10)
  - Drug interaction [Unknown]
  - Altered state of consciousness [Recovering/Resolving]
  - Neurotoxicity [Recovering/Resolving]
  - Acute kidney injury [Recovering/Resolving]
  - Decreased appetite [Recovering/Resolving]
  - Nausea [Recovering/Resolving]
  - Fatigue [Recovering/Resolving]
  - Presyncope [Recovering/Resolving]
  - Somnolence [Recovering/Resolving]
  - Prescription drug used without a prescription [Unknown]
